FAERS Safety Report 8959112 (Version 1)
Quarter: 2012Q4

REPORT INFORMATION
  Report Type: Spontaneous
  Country: US (occurrence: None)
  Receive Date: 20121128
  Receipt Date: 20121128
  Transmission Date: 20130627
  Serious: Yes (Other)
  Sender: FDA-Public Use
  Company Number: AUR-APL-2012-05076

PATIENT
  Sex: Male

DRUGS (7)
  1. METFORMIN (METFORMIN) [Suspect]
     Indication: DIABETES
     Dosage: Unknown
  2. LYRICA [Suspect]
     Indication: NERVE COMPRESSION
     Dosage: Unknown
     Dates: start: 20121116
  3. GLIPIZIDE [Suspect]
     Indication: DIABETES
     Dosage: Unknown
  4. EXFORGE [Suspect]
     Indication: HYPERTENSION
     Dosage: Unknown
  5. NIASPAN [Suspect]
     Indication: DRUG USE FOR UNKNOWN INDICATION
     Dosage: Unknown
  6. LEVEMIR [Suspect]
     Indication: DIABETES MELLITUS
     Dosage: Unknown
  7. VICTOZA [Suspect]
     Indication: DIABETES MELLITUS
     Dosage: Unknown

REACTIONS (2)
  - Fatigue [None]
  - Movement disorder [None]
